FAERS Safety Report 7781205-9 (Version None)
Quarter: 2011Q3

REPORT INFORMATION
  Report Type: 
  Country: None (occurrence: None)
  Receive Date: 20110927
  Receipt Date: 20110922
  Transmission Date: 20111222
  Serious: Yes (Other)
  Sender: FDA-Public Use
  Company Number: US-PFIZER INC-2011226624

PATIENT

DRUGS (1)
  1. SUTENT [Suspect]
     Dosage: 12.5 MG, UNK

REACTIONS (1)
  - BLOOD CREATININE INCREASED [None]
